FAERS Safety Report 10510849 (Version 2)
Quarter: 2014Q4

REPORT INFORMATION
  Report Type: Spontaneous
  Country: DE (occurrence: None)
  Receive Date: 20141008
  Receipt Date: 20141021
  Transmission Date: 20150528
  Serious: Yes (Hospitalization)
  Sender: FDA-Public Use
  Company Number: FK201403922

PATIENT
  Age: 63 Year
  Sex: Female

DRUGS (4)
  1. ANASTROZOLE (MANUFACTURER UNKNOWN) (ANASTROZOLE) (ANASTROZOLE) [Suspect]
     Active Substance: ANASTROZOLE
     Indication: BREAST CANCER RECURRENT
     Route: 048
     Dates: start: 2006, end: 20110204
  2. RAMIPRIL (RAMIPRIL) (RAMIPRIL) [Suspect]
     Active Substance: RAMIPRIL
     Indication: ROUTINE HEALTH MAINTENANCE
     Route: 048
     Dates: start: 2008, end: 20110204
  3. OXYBUTYNIN (OXYBUTYNIN) [Suspect]
     Active Substance: OXYBUTYNIN
     Indication: ROUTINE HEALTH MAINTENANCE
     Route: 048
     Dates: end: 20110204
  4. TEA [Suspect]
     Active Substance: TEA LEAF
     Indication: BREAST CANCER RECURRENT
     Route: 048
     Dates: start: 20101221, end: 20110204

REACTIONS (4)
  - Hepatotoxicity [None]
  - Hepatitis [None]
  - Herbal interaction [None]
  - Drug interaction [None]
